FAERS Safety Report 9358351 (Version 2)
Quarter: 2013Q3

REPORT INFORMATION
  Report Type: Report from Study
  Country: US (occurrence: US)
  Receive Date: 20130620
  Receipt Date: 20130710
  Transmission Date: 20140515
  Serious: Yes (Other)
  Sender: FDA-Public Use
  Company Number: US-ABBOTT-13P-163-1098025-00

PATIENT
  Age: 38 Year
  Sex: Female

DRUGS (11)
  1. RITONAVIR [Suspect]
     Indication: HIV INFECTION
     Route: 048
     Dates: start: 20130326
  2. ALGESTONE W/ESTRADIOL [Concomitant]
     Indication: CONTRACEPTION
     Dates: start: 20110317
  3. FLUCONAZOLE [Concomitant]
     Indication: VULVOVAGINAL CANDIDIASIS
     Dates: start: 20110504, end: 20110504
  4. NICOSTAT [Concomitant]
     Indication: VULVOVAGINAL CANDIDIASIS
     Dates: start: 20110504, end: 20110511
  5. REYATAZ [Concomitant]
     Indication: HIV INFECTION
     Dates: start: 20090513
  6. REYATAZ [Concomitant]
     Dates: start: 20130326
  7. COMBIVIR [Concomitant]
     Indication: HIV INFECTION
     Dates: start: 20090513
  8. COMBIVIR [Concomitant]
     Dates: start: 20130326
  9. ADEFOVIR DIPIVOXIL [Concomitant]
     Indication: PRODUCT USED FOR UNKNOWN INDICATION
     Dates: start: 20130326
  10. EPIVIR [Concomitant]
     Indication: HIV INFECTION
     Dates: start: 20090513
  11. EPIVIR [Concomitant]
     Dates: start: 20130326

REACTIONS (1)
  - Foetal death [Unknown]
